FAERS Safety Report 7530456-7 (Version None)
Quarter: 2011Q2

REPORT INFORMATION
  Report Type: 
  Country: None (occurrence: None)
  Receive Date: 20110607
  Receipt Date: 20110525
  Transmission Date: 20111010
  Serious: Yes (Hospitalization, Other)
  Sender: FDA-Public Use
  Company Number: US-BAYER-2011-047864

PATIENT
  Age: 25 Year
  Sex: Female

DRUGS (2)
  1. ALEVE [Suspect]
  2. COLCHICINE [Concomitant]

REACTIONS (9)
  - CHEST PAIN [None]
  - PULMONARY OEDEMA [None]
  - ARTERIOSPASM CORONARY [None]
  - CARDIAC FAILURE ACUTE [None]
  - PERICARDIAL EFFUSION [None]
  - VENTRICULAR HYPOKINESIA [None]
  - KOUNIS SYNDROME [None]
  - ELECTROCARDIOGRAM ST SEGMENT ELEVATION [None]
  - CARDIOGENIC SHOCK [None]
